FAERS Safety Report 5942411-9 (Version None)
Quarter: 2008Q4

REPORT INFORMATION
  Report Type: 
  Country: None (occurrence: None)
  Receive Date: 20081105
  Receipt Date: 20081024
  Transmission Date: 20090506
  Serious: Yes (Hospitalization)
  Sender: FDA-Public Use
  Company Number: DE-PFIZER INC-2006029923

PATIENT
  Sex: Male
  Weight: 83 kg

DRUGS (5)
  1. SU-011,248 [Suspect]
     Indication: METASTATIC RENAL CELL CARCINOMA
     Route: 048
     Dates: start: 20060116
  2. NOVONORM [Concomitant]
     Route: 048
     Dates: start: 19920101, end: 20071024
  3. SIMVASTATIN [Concomitant]
     Route: 048
     Dates: start: 20000101, end: 20060825
  4. LOPERAMIDE [Concomitant]
     Route: 048
     Dates: start: 20060127, end: 20060202
  5. METOCLOPRAMIDE [Concomitant]
     Route: 048
     Dates: start: 20060130, end: 20060202

REACTIONS (2)
  - DYSPNOEA [None]
  - PLEURAL EFFUSION [None]
